FAERS Safety Report 7426317-4 (Version None)
Quarter: 2011Q2

REPORT INFORMATION
  Report Type: 
  Country: None (occurrence: None)
  Receive Date: 20110420
  Receipt Date: 20110412
  Transmission Date: 20111010
  Serious: No
  Sender: FDA-Public Use
  Company Number: B0702102A

PATIENT
  Age: 85 Year
  Sex: Female

DRUGS (1)
  1. ZOVIRAX [Suspect]
     Route: 042

REACTIONS (1)
  - RED BLOOD CELL COUNT DECREASED [None]
